FAERS Safety Report 19284946 (Version 1)
Quarter: 2021Q2

REPORT INFORMATION
  Report Type: Spontaneous
  Country: US (occurrence: US)
  Receive Date: 20210420
  Receipt Date: 20210420
  Transmission Date: 20210717
  Serious: Yes (Death)
  Sender: FDA-Public Use
  Company Number: None

PATIENT
  Age: 59 Year
  Sex: Male
  Weight: 63 kg

DRUGS (2)
  1. VUSE SOLO ELECTRIC CIGARETTE [DEVICE] [Suspect]
     Active Substance: DEVICE
     Indication: ELECTRONIC CIGARETTE USER
     Route: 055
     Dates: start: 20190130, end: 20190202
  2. OXYGEN. [Suspect]
     Active Substance: OXYGEN

REACTIONS (2)
  - Device expulsion [None]
  - Burns third degree [None]

NARRATIVE: CASE EVENT DATE: 20190202
